FAERS Safety Report 7601520-9 (Version None)
Quarter: 2011Q3

REPORT INFORMATION
  Report Type: 
  Country: None (occurrence: None)
  Receive Date: 20110711
  Receipt Date: 20110627
  Transmission Date: 20111222
  Serious: Yes (Other)
  Sender: FDA-Public Use
  Company Number: PHHY2011MX42790

PATIENT
  Age: 85 Year
  Sex: Male

DRUGS (3)
  1. ANTICOAGULANTS [Concomitant]
  2. ANTIHYPERTENSIVES [Concomitant]
  3. EXFORGE [Suspect]
     Indication: HYPERTENSION
     Dosage: 1 DF, 160 MG VALS AND 10 MG AMLO
     Dates: start: 20110202, end: 20110301

REACTIONS (6)
  - FALL [None]
  - FACE INJURY [None]
  - HEAD INJURY [None]
  - WOUND [None]
  - NASAL INFLAMMATION [None]
  - EPISTAXIS [None]
